FAERS Safety Report 8893571 (Version 1)
Quarter: 2012Q4

REPORT INFORMATION
  Report Type: 
  Country: US (occurrence: US)
  Receive Date: 20121108
  Receipt Date: 20121108
  Transmission Date: 20130627
  Serious: No
  Sender: FDA-Public Use
  Company Number: US-PFIZER INC-2012271935

PATIENT
  Age: 62 Year
  Sex: Female
  Weight: 72.56 kg

DRUGS (5)
  1. LYRICA [Suspect]
     Indication: FIBROMYALGIA
     Dosage: 50 mg, 2x/day
     Route: 048
     Dates: start: 20120825, end: 201209
  2. KEPPRA [Suspect]
     Indication: SEIZURES
     Dosage: 500 mg, 2x/day
     Route: 048
     Dates: start: 2012, end: 20121029
  3. DIVALPROEX [Concomitant]
     Indication: SEIZURES
     Dosage: UNK
  4. TOPIRAMATE [Concomitant]
     Indication: SEIZURES
     Dosage: UNK
  5. LISINOPRIL W/HYDROCHLOROTHIAZIDE [Concomitant]
     Dosage: UNK

REACTIONS (1)
  - Alopecia [Not Recovered/Not Resolved]
